FAERS Safety Report 24000231 (Version 3)
Quarter: 2025Q1

REPORT INFORMATION
  Report Type: Spontaneous
  Country: US (occurrence: US)
  Receive Date: 20240621
  Receipt Date: 20250114
  Transmission Date: 20250409
  Serious: Yes (Disabling)
  Sender: PFIZER
  Company Number: US-PFIZER INC-PV202400081888

PATIENT
  Age: 74 Year
  Sex: Female
  Weight: 85.261 kg

DRUGS (6)
  1. XELJANZ XR [Suspect]
     Active Substance: TOFACITINIB CITRATE
     Indication: Rheumatoid arthritis
     Dosage: 11 MG, 1X/DAY (7-8 AM EACH DAY)
     Route: 048
     Dates: start: 202406
  2. METHOTREXATE [Concomitant]
     Active Substance: METHOTREXATE
     Indication: Rheumatoid arthritis
     Dosage: 17.5 MG, WEEKLY
  3. PREDNISONE [Concomitant]
     Active Substance: PREDNISONE
  4. FOLIC ACID [Concomitant]
     Active Substance: FOLIC ACID
     Indication: Rheumatoid arthritis
     Dosage: 1 MG, 1X/DAY
  5. ROSUVASTATIN [Concomitant]
     Active Substance: ROSUVASTATIN
     Indication: Cardiac disorder
     Dosage: 20 MG, 1X/DAY
  6. RESTASIS [Concomitant]
     Active Substance: CYCLOSPORINE
     Indication: Dry eye
     Dosage: 1 DROP, 2X/DAY

REACTIONS (7)
  - Interstitial lung disease [Unknown]
  - Cough [Unknown]
  - Dyspnoea [Not Recovered/Not Resolved]
  - Ear infection [Unknown]
  - Ear pruritus [Unknown]
  - Eye pruritus [Unknown]
  - Nasal pruritus [Unknown]
